FAERS Safety Report 9298583 (Version 2)
Quarter: 2013Q2

REPORT INFORMATION
  Report Type: Report from Study
  Country: FR (occurrence: FR)
  Receive Date: 20130520
  Receipt Date: 20130524
  Transmission Date: 20140414
  Serious: Yes (Other)
  Sender: FDA-Public Use
  Company Number: FR-ROCHE-1224234

PATIENT
  Age: 3 Year
  Sex: Male

DRUGS (4)
  1. RITUXIMAB [Suspect]
     Indication: B-CELL LYMPHOMA
     Route: 042
     Dates: start: 20130415, end: 20130415
  2. ETOPOSIDE [Suspect]
     Indication: B-CELL LYMPHOMA
     Route: 042
     Dates: start: 20130417, end: 20130420
  3. CYTARABINE [Suspect]
     Indication: B-CELL LYMPHOMA
     Route: 042
     Dates: start: 20130416, end: 20130420
  4. CYTARABINE [Suspect]
     Indication: B-CELL LYMPHOMA
     Route: 050
     Dates: start: 20130417, end: 20130420

REACTIONS (3)
  - Device related infection [Recovered/Resolved]
  - Febrile bone marrow aplasia [Unknown]
  - Catheter site inflammation [Recovered/Resolved]
